FAERS Safety Report 16208719 (Version 3)
Quarter: 2019Q2

REPORT INFORMATION
  Report Type: Spontaneous
  Country: BR (occurrence: BR)
  Receive Date: 20190417
  Receipt Date: 20190423
  Transmission Date: 20190711
  Serious: Yes (Other)
  Sender: FDA-Public Use
  Company Number: BR-ELI_LILLY_AND_COMPANY-BR201904008179

PATIENT
  Age: 80 Year
  Sex: Male

DRUGS (2)
  1. GABAPENTIN. [Concomitant]
     Active Substance: GABAPENTIN
     Indication: DIABETIC NEUROPATHY
     Dosage: UNK, UNKNOWN
     Route: 065
     Dates: start: 2007
  2. BASAGLAR [Suspect]
     Active Substance: INSULIN GLARGINE
     Indication: PRODUCT USED FOR UNKNOWN INDICATION
     Dosage: 20 [IU], DAILY
     Route: 065

REACTIONS (10)
  - Retinal haemorrhage [Unknown]
  - Hypoacusis [Unknown]
  - Dizziness [Unknown]
  - Visual impairment [Unknown]
  - Plicated tongue [Unknown]
  - Head discomfort [Unknown]
  - Fall [Unknown]
  - Blood glucose increased [Unknown]
  - Paraesthesia [Unknown]
  - Product storage error [Unknown]
